FAERS Safety Report 9165483 (Version 1)
Quarter: 2013Q1

REPORT INFORMATION
  Report Type: Spontaneous
  Country: US (occurrence: None)
  Receive Date: 20130314
  Receipt Date: 20130314
  Transmission Date: 20140127
  Serious: Yes (Other)
  Sender: FDA-Public Use
  Company Number: None

PATIENT
  Sex: Female

DRUGS (1)
  1. CIMZIA 200 MG UCB GROUP [Suspect]
     Indication: RHEUMATOID ARTHRITIS
     Dosage: FEB 2013- ONLY 1 SHOT GIVEN
     Dates: start: 201302

REACTIONS (1)
  - Infection [None]
